FAERS Safety Report 23794672 (Version 8)
Quarter: 2025Q3

REPORT INFORMATION
  Report Type: Spontaneous
  Country: US (occurrence: US)
  Receive Date: 20240429
  Receipt Date: 20250903
  Transmission Date: 20251020
  Serious: No
  Sender: PFIZER
  Company Number: US-PFIZER INC-202400090237

PATIENT
  Age: 14 Year
  Sex: Male
  Weight: 49.9 kg

DRUGS (4)
  1. GENOTROPIN [Suspect]
     Active Substance: SOMATROPIN
     Indication: Growth hormone deficiency
     Dosage: 2 MG, 1X/DAY AT BED TIME, EVERY NIGHT
     Route: 058
     Dates: start: 2023
  2. GENOTROPIN [Suspect]
     Active Substance: SOMATROPIN
     Indication: Hypopituitarism
     Dosage: 2 MG NIGHTLY 7 NIGHTS PER WEEK
     Route: 058
     Dates: start: 20240722
  3. GENOTROPIN [Suspect]
     Active Substance: SOMATROPIN
     Dosage: NIGHTLY (AT BEDTIME)
     Route: 058
  4. AZSTARYS [Concomitant]
     Active Substance: DEXMETHYLPHENIDATE HYDROCHLORIDE\SERDEXMETHYLPHENIDATE CHLORIDE
     Indication: Attention deficit hyperactivity disorder
     Dates: start: 2023

REACTIONS (1)
  - Device mechanical issue [Unknown]
